FAERS Safety Report 6128353-7 (Version None)
Quarter: 2009Q1

REPORT INFORMATION
  Report Type: 
  Country: None (occurrence: None)
  Receive Date: 20090323
  Receipt Date: 20090316
  Transmission Date: 20090719
  Serious: Yes (Other)
  Sender: FDA-Public Use
  Company Number: B0565505A

PATIENT
  Age: 43 Year
  Sex: Male

DRUGS (1)
  1. RANITIDINE [Suspect]
     Indication: PROPHYLAXIS
     Route: 042

REACTIONS (6)
  - ALTERED STATE OF CONSCIOUSNESS [None]
  - ANAPHYLACTIC REACTION [None]
  - DYSPNOEA [None]
  - HYPOTENSION [None]
  - NAUSEA [None]
  - URTICARIA [None]
